FAERS Safety Report 4277842-9 (Version None)
Quarter: 2004Q1

REPORT INFORMATION
  Report Type: 
  Country: None (occurrence: None)
  Receive Date: 20040121
  Receipt Date: 20030619
  Transmission Date: 20041129
  Serious: Yes (Hospitalization, Other)
  Sender: FDA-Public Use
  Company Number: 2003-06-2300

PATIENT
  Age: 41 Year
  Sex: Male

DRUGS (1)
  1. SUBUTEX [Suspect]
     Indication: DRUG DEPENDENCE
     Dosage: UNK - 8 MG QD
     Route: 042

REACTIONS (2)
  - ENDOCARDITIS [None]
  - INTENTIONAL MISUSE [None]
